FAERS Safety Report 9781353 (Version 1)
Quarter: 2013Q4

REPORT INFORMATION
  Report Type: Spontaneous
  Country: US (occurrence: None)
  Receive Date: 20131223
  Receipt Date: 20131223
  Transmission Date: 20140711
  Serious: Yes (Hospitalization, Other)
  Sender: FDA-Public Use
  Company Number: None

PATIENT
  Age: 59 Year
  Sex: Female
  Weight: 107 kg

DRUGS (19)
  1. ZANAMIVIR [Suspect]
     Indication: INFLUENZA
     Route: 042
     Dates: start: 20131212, end: 20131219
  2. INSULIN ASPART [Concomitant]
  3. LEVEMIR [Concomitant]
  4. PRIMAXIN [Concomitant]
  5. PROTONIX [Concomitant]
  6. TYLENOL [Concomitant]
  7. VANCOCIN [Concomitant]
  8. ZENPEP [Concomitant]
  9. ZOFRAN [Concomitant]
  10. ALBUTEROL IPPB [Concomitant]
  11. ASPIRIN [Concomitant]
  12. CLONIDINE [Concomitant]
  13. GLUCOSE [Concomitant]
  14. HEPARIN [Concomitant]
  15. HYDRALAZINE [Concomitant]
  16. HYDROCORTISONE [Concomitant]
  17. NITROGLYCERIN [Concomitant]
  18. NYSTATIN TOPICAL POWDER [Concomitant]
  19. SODIUM BICARBONATE [Concomitant]

REACTIONS (4)
  - Respiratory failure [None]
  - Confusional state [None]
  - Delirium [None]
  - Hallucination, visual [None]
